FAERS Safety Report 8152899-3 (Version None)
Quarter: 2012Q1

REPORT INFORMATION
  Report Type: 
  Country: None (occurrence: None)
  Receive Date: 20120221
  Receipt Date: 20120210
  Transmission Date: 20120608
  Serious: Yes (Hospitalization)
  Sender: FDA-Public Use
  Company Number: BE-JNJFOC-20111010170

PATIENT
  Age: 50 Year
  Sex: Male
  Weight: 69 kg

DRUGS (4)
  1. REMICADE [Suspect]
     Indication: COLITIS ULCERATIVE
     Route: 042
     Dates: start: 20110920
  2. REMICADE [Suspect]
     Route: 042
     Dates: start: 20110531
  3. REMICADE [Suspect]
     Route: 042
     Dates: start: 20110614
  4. REMICADE [Suspect]
     Route: 042
     Dates: start: 20111123

REACTIONS (1)
  - RENAL INFARCT [None]
